FAERS Safety Report 7981535-1 (Version None)
Quarter: 2011Q4

REPORT INFORMATION
  Report Type: 
  Country: None (occurrence: None)
  Receive Date: 20111215
  Receipt Date: 20111213
  Transmission Date: 20120403
  Serious: Yes (Other)
  Sender: FDA-Public Use
  Company Number: CA-PFIZER INC-2011292259

PATIENT
  Age: 62 Year
  Sex: Female

DRUGS (3)
  1. LANTUS [Concomitant]
     Dosage: UNK
  2. VARENICLINE TARTRATE [Suspect]
     Indication: SMOKING CESSATION THERAPY
     Dosage: STARTER PAK
     Route: 048
     Dates: start: 20111101
  3. INSULIN GLULISINE [Concomitant]
     Dosage: UNK

REACTIONS (1)
  - BLOOD GLUCOSE INCREASED [None]
